FAERS Safety Report 20802547 (Version 1)
Quarter: 2022Q2

REPORT INFORMATION
  Report Type: Spontaneous
  Country: US (occurrence: None)
  Receive Date: 20220509
  Receipt Date: 20220509
  Transmission Date: 20220721
  Serious: Yes (Hospitalization)
  Sender: FDA-Public Use
  Company Number: None

PATIENT
  Age: 61 Year
  Sex: Female

DRUGS (1)
  1. NIVESTYM [Suspect]
     Active Substance: FILGRASTIM-AAFI
     Indication: Plasma cell myeloma
     Dosage: FREQUENCY : DAILY;?
     Route: 058
     Dates: start: 20220503

REACTIONS (1)
  - Body temperature increased [None]

NARRATIVE: CASE EVENT DATE: 20220505
